FAERS Safety Report 16542524 (Version 2)
Quarter: 2019Q3

REPORT INFORMATION
  Report Type: Spontaneous
  Country: IT (occurrence: IT)
  Receive Date: 20190709
  Receipt Date: 20190720
  Transmission Date: 20191004
  Serious: Yes (Hospitalization, Other)
  Sender: FDA-Public Use
  Company Number: IT-AUROBINDO-AUR-APL-2019-038031

PATIENT

DRUGS (7)
  1. EZETIMIBE TABLETS [Suspect]
     Active Substance: EZETIMIBE
     Indication: TYPE IIA HYPERLIPIDAEMIA
     Dosage: UNK
     Route: 048
     Dates: start: 2002
  2. METHOTREXATE. [Concomitant]
     Active Substance: METHOTREXATE
     Indication: COGAN^S SYNDROME
     Dosage: 10 MILLIGRAM, EVERY WEEK (10 MG, QW)
     Route: 065
     Dates: start: 2000
  3. SALICYLIC ACID. [Concomitant]
     Active Substance: SALICYLIC ACID
     Indication: COGAN^S SYNDROME
     Dosage: 100 MILLIGRAM, DAILY (100 MG, QD)
     Route: 065
     Dates: start: 2000
  4. PANTOPRAZOLE [Concomitant]
     Active Substance: PANTOPRAZOLE
     Indication: COGAN^S SYNDROME
     Dosage: 20 MILLIGRAM, DAILY (20 MG, QD)
     Route: 065
     Dates: start: 2000
  5. ATORVASTATIN [Suspect]
     Active Substance: ATORVASTATIN
     Indication: TYPE IIA HYPERLIPIDAEMIA
     Dosage: 20 MILLIGRAM, DAILY
     Route: 065
     Dates: start: 2001
  6. FLUVASTATIN [Suspect]
     Active Substance: FLUVASTATIN SODIUM
     Indication: TYPE IIA HYPERLIPIDAEMIA
     Dosage: UNK
     Route: 065
     Dates: start: 2002
  7. METHYLPREDNISOLONE. [Concomitant]
     Active Substance: METHYLPREDNISOLONE
     Indication: COGAN^S SYNDROME
     Dosage: 4 MILLIGRAM, DAILY (4 MG, QD)
     Route: 065
     Dates: start: 2000

REACTIONS (6)
  - Acute kidney injury [Recovered/Resolved]
  - Drug intolerance [Unknown]
  - Myoglobinuria [Recovered/Resolved]
  - Rhabdomyolysis [Recovered/Resolved]
  - Myalgia [Recovered/Resolved]
  - Blood creatine phosphokinase increased [Unknown]

NARRATIVE: CASE EVENT DATE: 2002
